FAERS Safety Report 20176589 (Version 2)
Quarter: 2022Q1

REPORT INFORMATION
  Report Type: Spontaneous
  Country: US (occurrence: None)
  Receive Date: 20211213
  Receipt Date: 20220117
  Transmission Date: 20220423
  Serious: No
  Sender: FDA-Public Use
  Company Number: 2021A844709

PATIENT
  Age: 24227 Day
  Sex: Female
  Weight: 110.2 kg

DRUGS (1)
  1. BYDUREON BCISE [Suspect]
     Active Substance: EXENATIDE
     Indication: Type 2 diabetes mellitus
     Route: 058
     Dates: start: 20210904

REACTIONS (4)
  - Injection site mass [Not Recovered/Not Resolved]
  - Incorrect dose administered by device [Not Recovered/Not Resolved]
  - Drug delivery system issue [Unknown]
  - Device issue [Unknown]

NARRATIVE: CASE EVENT DATE: 20210904
